FAERS Safety Report 6603002-X (Version None)
Quarter: 2010Q1

REPORT INFORMATION
  Report Type: 
  Country: None (occurrence: None)
  Receive Date: 20100226
  Receipt Date: 20100223
  Transmission Date: 20100710
  Serious: Yes (Hospitalization, Other)
  Sender: FDA-Public Use
  Company Number: MX-BAYER-201011772LA

PATIENT
  Age: 25 Year
  Sex: Female

DRUGS (1)
  1. YASMIN [Suspect]
     Indication: CONTRACEPTION
     Route: 048
     Dates: start: 20100217

REACTIONS (6)
  - ANAPHYLACTIC SHOCK [None]
  - BURNING SENSATION [None]
  - DERMATITIS ALLERGIC [None]
  - EYE PRURITUS [None]
  - OEDEMA [None]
  - TONGUE OEDEMA [None]
